FAERS Safety Report 21418676 (Version 1)
Quarter: 2022Q4

REPORT INFORMATION
  Report Type: Spontaneous
  Country: JP (occurrence: JP)
  Receive Date: 20221006
  Receipt Date: 20221006
  Transmission Date: 20230112
  Serious: Yes (Other)
  Sender: FDA-Public Use
  Company Number: JP-009507513-2210JPN000796

PATIENT

DRUGS (1)
  1. PEMBROLIZUMAB [Suspect]
     Active Substance: PEMBROLIZUMAB
     Indication: Non-small cell lung cancer
     Dosage: 200 MILLIGRAM ON DAY 1 OF A 3-WEEK CYCLE
     Route: 042

REACTIONS (1)
  - Cerebral infarction [Unknown]
